FAERS Safety Report 19654579 (Version 1)
Quarter: 2021Q3

REPORT INFORMATION
  Report Type: Spontaneous
  Country: US (occurrence: US)
  Receive Date: 20210804
  Receipt Date: 20210804
  Transmission Date: 20211014
  Serious: Yes (Other)
  Sender: FDA-Public Use
  Company Number: US-HIKMA PHARMACEUTICALS USA INC.-US-H14001-21-00508

PATIENT
  Age: 34 Year
  Sex: Female

DRUGS (2)
  1. OXYCODONE [Suspect]
     Active Substance: OXYCODONE
     Indication: PRODUCT USED FOR UNKNOWN INDICATION
     Dosage: UNKNOWN
     Route: 065
  2. OXYMORPHONE HYDROCHLORIDE. [Concomitant]
     Active Substance: OXYMORPHONE HYDROCHLORIDE
     Indication: PAIN
     Route: 048
     Dates: start: 202007

REACTIONS (1)
  - Drug abuse [Unknown]

NARRATIVE: CASE EVENT DATE: 202011
